FAERS Safety Report 16476846 (Version 1)
Quarter: 2019Q2

REPORT INFORMATION
  Report Type: Report from Study
  Country: US (occurrence: US)
  Receive Date: 20190626
  Receipt Date: 20190626
  Transmission Date: 20190711
  Serious: No
  Sender: FDA-Public Use
  Company Number: US-ALEXION PHARMACEUTICALS INC.-A201909308

PATIENT
  Sex: Male

DRUGS (1)
  1. SOLIRIS [Suspect]
     Active Substance: ECULIZUMAB
     Indication: PAROXYSMAL NOCTURNAL HAEMOGLOBINURIA
     Dosage: UNK
     Route: 065

REACTIONS (5)
  - Insomnia [Unknown]
  - Traumatic shock [Unknown]
  - Injection site haemorrhage [Unknown]
  - Road traffic accident [Unknown]
  - Post-traumatic neck syndrome [Unknown]

NARRATIVE: CASE EVENT DATE: 20190610
